FAERS Safety Report 5372627-4 (Version None)
Quarter: 2007Q2

REPORT INFORMATION
  Report Type: 
  Country: None (occurrence: None)
  Receive Date: 20070615
  Receipt Date: 20060918
  Transmission Date: 20071010
  Serious: Yes (Other)
  Sender: FDA-Public Use
  Company Number: 200611052US

PATIENT
  Age: 39 Year
  Sex: Male
  Weight: 66 kg

DRUGS (6)
  1. LANTUS [Suspect]
     Indication: DIABETES MELLITUS INSULIN-DEPENDENT
     Dosage: 18 U HS
     Dates: start: 20050101
  2. LANTUS [Suspect]
     Indication: DIABETES MELLITUS INSULIN-DEPENDENT
     Dosage: 15 U
     Dates: start: 20060130
  3. INSULIN [Concomitant]
  4. VITAMINS NOS, MINERALS NOS (CENTRUM /00554501/) [Concomitant]
  5. FISH OIL [Concomitant]
  6. ASCORBIC ACID, PYRIDOXINE HYDROCHLORIDE, CYANOCOBALAMIN, RIBOFLAVIN, N [Concomitant]

REACTIONS (4)
  - BLOOD GLUCOSE INCREASED [None]
  - HYPOGLYCAEMIA [None]
  - INJECTION SITE EXTRAVASATION [None]
  - INJECTION SITE HAEMORRHAGE [None]
